FAERS Safety Report 11982542 (Version 1)
Quarter: 2016Q1

REPORT INFORMATION
  Report Type: Other
  Country: CA (occurrence: CA)
  Receive Date: 20160201
  Receipt Date: 20160201
  Transmission Date: 20160526
  Serious: Yes (Disabling)
  Sender: FDA-Public Use
  Company Number: CA-TARO PHARMACEUTICALS USA.,INC-2016SUN00049

PATIENT
  Age: 25 Year
  Sex: Female
  Weight: 53.61 kg

DRUGS (1)
  1. BETADERM [Suspect]
     Active Substance: BETAMETHASONE VALERATE
     Indication: HYPERSENSITIVITY
     Dosage: UNK
     Route: 061

REACTIONS (7)
  - Sleep disorder [Unknown]
  - Hypersensitivity [Unknown]
  - Condition aggravated [Unknown]
  - Eczema [Unknown]
  - Alopecia [Unknown]
  - Body temperature fluctuation [Unknown]
  - Lymphadenopathy [Unknown]
